FAERS Safety Report 5870214-2 (Version None)
Quarter: 2008Q3

REPORT INFORMATION
  Report Type: 
  Country: None (occurrence: None)
  Receive Date: 20080902
  Receipt Date: 20080818
  Transmission Date: 20090109
  Serious: Yes (Other)
  Sender: FDA-Public Use
  Company Number: 2008-182289-NL

PATIENT
  Age: 16 Year
  Sex: Female
  Weight: 99.8 kg

DRUGS (7)
  1. REMERON [Suspect]
     Indication: BIPOLAR DISORDER
     Dosage: 45 MG QD ORAL
     Route: 048
     Dates: start: 20080201, end: 20080811
  2. REMERON [Suspect]
     Indication: SCHIZOAFFECTIVE DISORDER
     Dosage: 45 MG QD ORAL
     Route: 048
     Dates: start: 20080201, end: 20080811
  3. REMERON [Suspect]
     Indication: BIPOLAR DISORDER
     Dosage: 90 MG DAILY, 45 MG, 30 MG AND 15 MG IN ERROR BETWEEN 4 AUGUST 2008 AND 8 AUGUST 2008
     Dates: start: 20080804, end: 20080808
  4. REMERON [Suspect]
     Indication: SCHIZOAFFECTIVE DISORDER
     Dosage: 90 MG DAILY, 45 MG, 30 MG AND 15 MG IN ERROR BETWEEN 4 AUGUST 2008 AND 8 AUGUST 2008
     Dates: start: 20080804, end: 20080808
  5. REMERON [Suspect]
     Indication: BIPOLAR DISORDER
     Dosage: 45 MG QD ORAL THE FEMALE REFUSED REMERON ON 11 AND 12 AUGUST 2008.
     Dates: start: 20080813, end: 20080815
  6. REMERON [Suspect]
     Indication: SCHIZOAFFECTIVE DISORDER
     Dosage: 45 MG QD ORAL THE FEMALE REFUSED REMERON ON 11 AND 12 AUGUST 2008.
     Dates: start: 20080813, end: 20080815
  7. GEODON [Concomitant]

REACTIONS (10)
  - DYSPHAGIA [None]
  - EAR PAIN [None]
  - FACIAL PALSY [None]
  - HEADACHE [None]
  - HYPOAESTHESIA [None]
  - INCORRECT DOSE ADMINISTERED [None]
  - JOINT SWELLING [None]
  - LOCAL SWELLING [None]
  - OVERDOSE [None]
  - SWELLING FACE [None]
